FAERS Safety Report 21845422 (Version 1)
Quarter: 2023Q1

REPORT INFORMATION
  Report Type: Spontaneous
  Country: GB (occurrence: GB)
  Receive Date: 20230111
  Receipt Date: 20230111
  Transmission Date: 20230417
  Serious: Yes (Other)
  Sender: FDA-Public Use
  Company Number: GB-SUNPHARMA-2022R1-370780AA

PATIENT
  Sex: Female

DRUGS (1)
  1. DUAC [Suspect]
     Active Substance: BENZOYL PEROXIDE\CLINDAMYCIN PHOSPHATE
     Indication: Acne
     Dosage: UNK, QD (10MG+50MG)
     Route: 065
     Dates: start: 2018

REACTIONS (2)
  - Eye swelling [Recovered/Resolved]
  - Swelling face [Recovered/Resolved]

NARRATIVE: CASE EVENT DATE: 20180101
